FAERS Safety Report 4982973-1 (Version None)
Quarter: 2006Q2

REPORT INFORMATION
  Report Type: 
  Country: None (occurrence: None)
  Receive Date: 20060426
  Receipt Date: 20060417
  Transmission Date: 20061013
  Serious: Yes (Disabling)
  Sender: FDA-Public Use
  Company Number: US-JNJFOC-20060403779

PATIENT
  Sex: Female
  Weight: 58.97 kg

DRUGS (12)
  1. REMICADE [Suspect]
     Route: 042
  2. REMICADE [Suspect]
     Route: 042
  3. REMICADE [Suspect]
     Route: 042
  4. REMICADE [Suspect]
     Route: 042
  5. REMICADE [Suspect]
     Route: 042
  6. REMICADE [Suspect]
     Route: 042
  7. REMICADE [Suspect]
     Indication: CROHN'S DISEASE
     Dosage: 20 INFUSIONS PRIOR TO BASELINE
     Route: 042
  8. MERCAPTOPURINE [Concomitant]
     Indication: CROHN'S DISEASE
  9. MESALAMINE [Concomitant]
     Indication: CROHN'S DISEASE
  10. ANTIBIOTICS [Concomitant]
     Indication: CROHN'S DISEASE
  11. PREDNISONE [Concomitant]
     Indication: CROHN'S DISEASE
  12. ANTIDEPRESSANTS [Concomitant]
     Indication: CROHN'S DISEASE

REACTIONS (2)
  - IMPAIRED HEALING [None]
  - PYODERMA GANGRENOSUM [None]
